FAERS Safety Report 8571054-6 (Version None)
Quarter: 2012Q3

REPORT INFORMATION
  Report Type: 
  Country: None (occurrence: None)
  Receive Date: 20120806
  Receipt Date: 20120730
  Transmission Date: 20120928
  Serious: No
  Sender: FDA-Public Use
  Company Number: US-009507513-1208USA000611

PATIENT

DRUGS (2)
  1. CLARITIN [Concomitant]
     Indication: ALLERGY TO ARTHROPOD STING
  2. JANUMET [Suspect]
     Dosage: UNK

REACTIONS (1)
  - OEDEMA PERIPHERAL [None]
